FAERS Safety Report 6818731-2 (Version None)
Quarter: 2010Q2

REPORT INFORMATION
  Report Type: 
  Country: None (occurrence: None)
  Receive Date: 20100630
  Receipt Date: 20100616
  Transmission Date: 20101027
  Serious: Yes (Hospitalization)
  Sender: FDA-Public Use
  Company Number: 1000014738

PATIENT
  Age: 64 Year
  Sex: Female

DRUGS (11)
  1. CITALOPRAM HYDROBROMIDE [Suspect]
     Indication: DEPRESSION
     Dosage: 20 MG (20 MG, 1 IN 1 D), ORAL
     Route: 048
  2. ARAVA [Suspect]
     Indication: RHEUMATOID ARTHRITIS
     Dosage: 20 MG (20 MG, 1 IN 1 D), ORAL
     Route: 048
     Dates: start: 20020101, end: 20091210
  3. HUMIRA [Suspect]
     Indication: RHEUMATOID ARTHRITIS
     Dosage: 2.6667 MG (40 MG, 2 IN 1 M), SUBCUTANEOUS
     Route: 058
     Dates: start: 20090401, end: 20100301
  4. OMEPRAZOLE [Suspect]
     Dosage: 20 MG (20 MG, 1 IN 1 D), ORAL
     Route: 048
  5. XANAX [Suspect]
     Indication: ANXIETY
     Dosage: 0.5 MG (0.5 MG, 1 IN 1 D), ORAL
     Route: 048
  6. RIVOTRIL [Suspect]
     Indication: SLEEP DISORDER
     Dosage: 15 MG (15 MG, 1 IN 1 D), ORAL
     Route: 048
  7. CORTANCYL [Suspect]
     Indication: SLEEP DISORDER
     Dosage: 10 GTT (10 GTT, 1 IN 1 D), ORAL
     Route: 048
  8. ACTONEL [Suspect]
     Dosage: 5 MG (35 MG, 1 IN 1 WK), ORAL
     Route: 048
  9. TEMERIT [Suspect]
     Dosage: 5 MG (5 MG, 1 IN 1 D), ORAL
     Route: 048
  10. TAREG [Suspect]
     Indication: HYPERTENSION
     Dosage: 160 MG (160 MG, 1 IN 1 D), ORAL
     Route: 048
  11. DAFALGAN [Suspect]
     Dosage: 3 TO 4 G DAILY, ORAL
     Route: 048

REACTIONS (5)
  - ASTHENIA [None]
  - DRUG INEFFECTIVE [None]
  - GAIT DISTURBANCE [None]
  - GASTROINTESTINAL DISORDER [None]
  - PERIPHERAL SENSORY NEUROPATHY [None]
